FAERS Safety Report 18238810 (Version 1)
Quarter: 2020Q3

REPORT INFORMATION
  Report Type: Other
  Country: US (occurrence: US)
  Receive Date: 20200907
  Receipt Date: 20200907
  Transmission Date: 20201103
  Serious: Yes (Death, Life-Threatening, Hospitalization, Other)
  Sender: FDA-Public Use
  Company Number: US-BIOLOGICAL E. LTD-2089461

PATIENT
  Age: 60 Year
  Sex: Male

DRUGS (2)
  1. CEFTAROLINE [Suspect]
     Active Substance: CEFTAROLINE
  2. DAPTOMYCIN. [Suspect]
     Active Substance: DAPTOMYCIN
     Indication: STAPHYLOCOCCAL INFECTION

REACTIONS (8)
  - Septic shock [Fatal]
  - Arteriovenous fistula [Fatal]
  - Drug ineffective [Fatal]
  - Haemodynamic instability [Fatal]
  - Bacteraemia [Fatal]
  - Condition aggravated [Fatal]
  - Renal failure [Fatal]
  - Cardiac failure acute [Fatal]
